FAERS Safety Report 17508874 (Version 1)
Quarter: 2020Q1

REPORT INFORMATION
  Report Type: Spontaneous
  Country: DE (occurrence: DE)
  Receive Date: 20200306
  Receipt Date: 20200306
  Transmission Date: 20200409
  Serious: Yes (Disabling, Other)
  Sender: FDA-Public Use
  Company Number: DE-PFIZER INC-2020095110

PATIENT
  Sex: Female
  Weight: 6 kg

DRUGS (1)
  1. CYTOTEC [Suspect]
     Active Substance: MISOPROSTOL
     Indication: LABOUR INDUCTION
     Dosage: 1 DF, UNK (1 TABLET)
     Route: 064

REACTIONS (2)
  - Hypoacusis [Recovered/Resolved with Sequelae]
  - Foetal exposure during delivery [Recovered/Resolved with Sequelae]

NARRATIVE: CASE EVENT DATE: 20191021
